FAERS Safety Report 11827354 (Version 1)
Quarter: 2015Q4

REPORT INFORMATION
  Report Type: Spontaneous
  Country: US (occurrence: US)
  Receive Date: 20151211
  Receipt Date: 20151211
  Transmission Date: 20160305
  Serious: Yes (Hospitalization, Other)
  Sender: FDA-Public Use
  Company Number: US-BAUSCH-BL-2015-029562

PATIENT
  Sex: Female

DRUGS (1)
  1. ATIVAN [Suspect]
     Active Substance: LORAZEPAM
     Indication: PRODUCT USED FOR UNKNOWN INDICATION
     Dates: end: 20150901

REACTIONS (6)
  - Joint injury [Unknown]
  - Hospitalisation [Unknown]
  - Drug dependence [Recovered/Resolved]
  - Drug prescribing error [Unknown]
  - Spinal fracture [Unknown]
  - Drug withdrawal convulsions [Recovered/Resolved]
